FAERS Safety Report 20232087 (Version 1)
Quarter: 2021Q4

REPORT INFORMATION
  Report Type: Spontaneous
  Country: CN (occurrence: CN)
  Receive Date: 20211227
  Receipt Date: 20211227
  Transmission Date: 20220304
  Serious: Yes (Hospitalization, Other)
  Sender: FDA-Public Use
  Company Number: CN-ALVOGEN-2021-ALVOGEN-117985

PATIENT
  Age: 27 Year
  Sex: Female

DRUGS (5)
  1. DEXAMETHASONE [Suspect]
     Active Substance: DEXAMETHASONE
     Indication: Precursor T-lymphoblastic lymphoma/leukaemia
  2. PEGASPARGASE [Suspect]
     Active Substance: PEGASPARGASE
     Indication: Precursor T-lymphoblastic lymphoma/leukaemia
  3. CYCLOPHOSPHAMIDE [Suspect]
     Active Substance: CYCLOPHOSPHAMIDE
     Indication: Precursor T-lymphoblastic lymphoma/leukaemia
  4. DOXORUBICIN [Suspect]
     Active Substance: DOXORUBICIN
     Indication: Precursor T-lymphoblastic lymphoma/leukaemia
  5. VINDESINE [Suspect]
     Active Substance: VINDESINE
     Indication: Precursor T-lymphoblastic lymphoma/leukaemia

REACTIONS (3)
  - Cerebral infarction [Recovered/Resolved]
  - Haemorrhage [Recovered/Resolved]
  - Hemiplegia [Recovered/Resolved]
